FAERS Safety Report 20873512 (Version 3)
Quarter: 2024Q2

REPORT INFORMATION
  Report Type: Spontaneous
  Country: IN (occurrence: IN)
  Receive Date: 20220525
  Receipt Date: 20240528
  Transmission Date: 20240716
  Serious: Yes (Death, Hospitalization, Other)
  Sender: FDA-Public Use
  Company Number: IN-PFIZER INC-2020485651

PATIENT
  Age: 76 Year
  Sex: Female

DRUGS (3)
  1. PALBOCICLIB [Suspect]
     Active Substance: PALBOCICLIB
     Indication: Breast cancer metastatic
     Dosage: 125 MG, 1X/DAY
     Route: 048
     Dates: start: 20201027
  2. PALBOCICLIB [Suspect]
     Active Substance: PALBOCICLIB
     Dosage: 100 MG
  3. PALBOCICLIB [Suspect]
     Active Substance: PALBOCICLIB
     Dosage: 75 MG, 1X/DAY
     Route: 048

REACTIONS (7)
  - Cardiac arrest [Fatal]
  - Diabetes mellitus inadequate control [Recovering/Resolving]
  - Hyperkalaemia [Recovering/Resolving]
  - Dizziness [Not Recovered/Not Resolved]
  - Discomfort [Unknown]
  - Fatigue [Recovering/Resolving]
  - Respiratory tract infection [Recovering/Resolving]
